FAERS Safety Report 7830201-1 (Version None)
Quarter: 2011Q4

REPORT INFORMATION
  Report Type: 
  Country: None (occurrence: None)
  Receive Date: 20111021
  Receipt Date: 20111010
  Transmission Date: 20120403
  Serious: Yes (Other)
  Sender: FDA-Public Use
  Company Number: PHHY2011GB79956

PATIENT
  Age: 12 Year
  Sex: Female

DRUGS (9)
  1. RITUXIMAB [Suspect]
     Dosage: 2 DF, UNK
  2. CYCLOSPORINE [Suspect]
     Indication: IMMUNOSUPPRESSION
  3. CYCLOPHOSPHAMIDE [Suspect]
     Dosage: 1-2 MG/KG/DAY
     Route: 048
  4. CYCLOPHOSPHAMIDE [Suspect]
     Indication: WEGENER'S GRANULOMATOSIS
     Dosage: TOTAL OF 3 DOSES FOLLOWED BY THREE WEEKLY TREATMENT FOR ANOTHER 2-4 DOSES
     Route: 042
  5. METHYLPREDNISOLONE [Suspect]
     Dosage: 500 MG, DAILY
     Route: 042
  6. PREDNISOLONE [Suspect]
     Dosage: 1 MG/KG, (UPTO 60 MG)
     Route: 048
  7. CAMPATH [Suspect]
     Dosage: 1 DF, UNK
  8. PREDNISOLONE [Suspect]
     Dosage: 10 MG/DAY
     Route: 048
  9. INFLIXIMAB [Suspect]
     Dosage: 1 DF, UNK

REACTIONS (7)
  - BRONCHIECTASIS [None]
  - BRONCHOSTENOSIS [None]
  - NASAL SEPTUM DISORDER [None]
  - HEARING IMPAIRED [None]
  - LOWER RESPIRATORY TRACT INFECTION [None]
  - PNEUMOTHORAX [None]
  - OESOPHAGEAL CANDIDIASIS [None]
